FAERS Safety Report 9072769 (Version 1)
Quarter: 2013Q1

REPORT INFORMATION
  Report Type: Report from Study
  Country: US (occurrence: US)
  Receive Date: 20130129
  Receipt Date: 20130129
  Transmission Date: 20140127
  Serious: No
  Sender: FDA-Public Use
  Company Number: US-ABBOTT-12P-163-0922738-00

PATIENT
  Sex: Female
  Weight: 81.72 kg

DRUGS (5)
  1. HUMIRA 40 MG/0.8 ML PEN [Suspect]
     Indication: CROHN^S DISEASE
     Dates: start: 201201
  2. CARAFATE [Concomitant]
     Indication: PRODUCT USED FOR UNKNOWN INDICATION
  3. DEXILANT [Concomitant]
     Indication: PRODUCT USED FOR UNKNOWN INDICATION
  4. TRAMADOL [Concomitant]
     Indication: PRODUCT USED FOR UNKNOWN INDICATION
  5. WELBUTRIN [Concomitant]
     Indication: PRODUCT USED FOR UNKNOWN INDICATION

REACTIONS (4)
  - Oesophageal disorder [Recovering/Resolving]
  - Dysphagia [Recovering/Resolving]
  - Oesophageal stenosis [Recovering/Resolving]
  - Arthralgia [Not Recovered/Not Resolved]
